FAERS Safety Report 24943492 (Version 1)
Quarter: 2025Q1

REPORT INFORMATION
  Report Type: Spontaneous
  Country: HR (occurrence: HR)
  Receive Date: 20250207
  Receipt Date: 20250207
  Transmission Date: 20250409
  Serious: Yes (Other)
  Sender: ALEXION PHARMACEUTICALS
  Company Number: HR-CHEPLA-2025001393

PATIENT
  Age: 57 Year

DRUGS (1)
  1. QUETIAPINE FUMARATE [Suspect]
     Active Substance: QUETIAPINE FUMARATE
     Indication: Product used for unknown indication
     Dosage: 20 GRAM, QD

REACTIONS (2)
  - Suicide attempt [Unknown]
  - Intentional overdose [Unknown]
